FAERS Safety Report 4519846-4 (Version None)
Quarter: 2004Q4

REPORT INFORMATION
  Report Type: 
  Country: None (occurrence: None)
  Receive Date: 20041207
  Receipt Date: 20041125
  Transmission Date: 20050328
  Serious: Yes (Other)
  Sender: FDA-Public Use
  Company Number: GB-JNJFOC-20040704746

PATIENT
  Sex: Female
  Weight: 9.78 kg

DRUGS (2)
  1. TOPAMAX [Suspect]
     Indication: EPILEPSY
     Route: 049
  2. NITRAZEPAM [Concomitant]
     Route: 065

REACTIONS (2)
  - CYANOSIS [None]
  - PALLOR [None]
